FAERS Safety Report 10148035 (Version 2)
Quarter: 2014Q2

REPORT INFORMATION
  Report Type: Spontaneous
  Country: US (occurrence: US)
  Receive Date: 20140501
  Receipt Date: 20140501
  Transmission Date: 20141212
  Serious: No
  Sender: FDA-Public Use
  Company Number: US-AMGEN-USASP2014023876

PATIENT
  Age: 58 Year
  Sex: Female
  Weight: 87.53 kg

DRUGS (8)
  1. ENBREL [Suspect]
     Indication: PSORIATIC ARTHROPATHY
     Dosage: 50 MG, QWK
     Route: 065
     Dates: start: 20140328
  2. ENBREL [Suspect]
     Indication: OSTEOARTHRITIS
  3. CARBATROL [Concomitant]
     Dosage: 2 CAPSULE, QHS
  4. MOBIC [Concomitant]
     Dosage: 1 TABLET, QD
     Route: 048
  5. NEXIUM                             /01479302/ [Concomitant]
     Dosage: 1 TABLET, QD
     Route: 048
  6. METOPROLOL SUCCINATE [Concomitant]
     Dosage: 25 MG, QD
     Route: 048
  7. LOSARTAN [Concomitant]
     Dosage: 25 MG, QD
     Route: 048
  8. ESCITALOPRAM [Concomitant]
     Dosage: 20 UNK, QD
     Route: 048

REACTIONS (1)
  - Headache [Unknown]
